FAERS Safety Report 19116099 (Version 1)
Quarter: 2021Q2

REPORT INFORMATION
  Report Type: Report from Study
  Country: US (occurrence: US)
  Receive Date: 20210409
  Receipt Date: 20210409
  Transmission Date: 20210717
  Serious: Yes (Other)
  Sender: FDA-Public Use
  Company Number: US-ASTELLAS-2021US012812

PATIENT
  Age: 83 Year
  Sex: Male

DRUGS (1)
  1. ASP2215 [Suspect]
     Active Substance: GILTERITINIB
     Indication: ACUTE MYELOID LEUKAEMIA
     Dosage: 120 MG, ONCE DAILY (IN THE EVENING WITHOUT FOOD)
     Route: 048
     Dates: start: 20210322

REACTIONS (6)
  - Swollen tongue [Unknown]
  - Tongue discolouration [Unknown]
  - Platelet count decreased [Unknown]
  - Oral blood blister [Unknown]
  - Mouth haemorrhage [Unknown]
  - Haemoglobin decreased [Unknown]

NARRATIVE: CASE EVENT DATE: 20210402
